FAERS Safety Report 6233594-4 (Version None)
Quarter: 2009Q2

REPORT INFORMATION
  Report Type: 
  Country: None (occurrence: None)
  Receive Date: 20090615
  Receipt Date: 20090609
  Transmission Date: 20091009
  Serious: Yes (Life-Threatening)
  Sender: FDA-Public Use
  Company Number: 2009US002342

PATIENT
  Age: 76 Year
  Sex: Female
  Weight: 66.2 kg

DRUGS (8)
  1. LEXISCAN [Suspect]
     Indication: SCAN MYOCARDIAL PERFUSION
     Dosage: 0.4 MG, TOTAL DOSE, IV NOS
     Route: 042
     Dates: start: 20090609, end: 20090609
  2. ASPIRIN [Concomitant]
  3. FUROSEMIDE [Concomitant]
  4. KLOR-CON [Concomitant]
  5. LISINOPRIL [Concomitant]
  6. METOPROLOL SUCCINATE [Concomitant]
  7. WARFARIN SODIUM [Concomitant]
  8. TYLENOL (CAPLET) [Concomitant]

REACTIONS (7)
  - CARDIAC ARREST [None]
  - DYSPNOEA [None]
  - ERYTHEMA [None]
  - FATIGUE [None]
  - RESPIRATORY ARREST [None]
  - STRESS [None]
  - VENTRICULAR FIBRILLATION [None]
